FAERS Safety Report 5892628-7 (Version None)
Quarter: 2008Q3

REPORT INFORMATION
  Report Type: 
  Country: None (occurrence: None)
  Receive Date: 20080919
  Receipt Date: 20080919
  Transmission Date: 20090109
  Serious: Yes (Other)
  Sender: FDA-Public Use
  Company Number: None

PATIENT
  Sex: Female
  Weight: 61.2356 kg

DRUGS (1)
  1. SIMVASTATIN [Suspect]
     Indication: ARRHYTHMIA
     Dosage: 20MG ONE DAILY PO
     Route: 048
     Dates: start: 20071108, end: 20080425

REACTIONS (3)
  - ARRHYTHMIA [None]
  - DIZZINESS [None]
  - SYNCOPE [None]
